FAERS Safety Report 5385836-5 (Version None)
Quarter: 2007Q3

REPORT INFORMATION
  Report Type: 
  Country: None (occurrence: None)
  Receive Date: 20070712
  Receipt Date: 20070629
  Transmission Date: 20080115
  Serious: Yes (Hospitalization)
  Sender: FDA-Public Use
  Company Number: TW-ELI_LILLY_AND_COMPANY-TW200706006470

PATIENT
  Age: 47 Year
  Sex: Male
  Weight: 78 kg

DRUGS (3)
  1. CYMBALTA [Suspect]
     Indication: MAJOR DEPRESSION
     Dosage: 30 MG, 2/D
     Route: 048
     Dates: start: 20061207
  2. PMS-ZOPICLONE [Concomitant]
     Indication: INSOMNIA
     Dosage: 7.5 MG, DAILY (1/D)
     Route: 048
     Dates: start: 20061207, end: 20070414
  3. NORVASC [Concomitant]
     Indication: ESSENTIAL HYPERTENSION
     Dosage: 5 MG, DAILY (1/D)
     Route: 048
     Dates: start: 20061207, end: 20070414

REACTIONS (2)
  - DEPRESSION [None]
  - SUICIDE ATTEMPT [None]
